FAERS Safety Report 7218269-7 (Version None)
Quarter: 2010Q4

REPORT INFORMATION
  Report Type: 
  Country: None (occurrence: None)
  Receive Date: 20101230
  Receipt Date: 20101224
  Transmission Date: 20110411
  Serious: Yes (Hospitalization)
  Sender: FDA-Public Use
  Company Number: 007077

PATIENT
  Sex: Female

DRUGS (8)
  1. CERTOLIZUMAB PEGOL (CERTOLIZUMAB PEGOL) [Suspect]
     Indication: RHEUMATOID ARTHRITIS
     Dosage: (SUBCUTANEOUS)
     Route: 058
     Dates: start: 20100121, end: 20100121
  2. VOLTAREN [Suspect]
     Indication: RHEUMATOID ARTHRITIS
     Dosage: (75 MG ORAL)
     Route: 048
     Dates: start: 20090322, end: 20100204
  3. METHOTREXATE [Suspect]
     Indication: RHEUMATOID ARTHRITIS
     Dosage: (8 MG ORAL)
     Route: 048
     Dates: start: 20090225, end: 20100204
  4. FOLIC ACID [Concomitant]
  5. PREDNISOLONE [Concomitant]
  6. INDOMETACIN [Concomitant]
  7. TEPRENONE [Concomitant]
  8. ATORVASTATIN CALCIUM [Concomitant]

REACTIONS (13)
  - ALANINE AMINOTRANSFERASE INCREASED [None]
  - ANTIMITOCHONDRIAL ANTIBODY POSITIVE [None]
  - ASCITES [None]
  - ASPARTATE AMINOTRANSFERASE INCREASED [None]
  - BILIARY CIRRHOSIS PRIMARY [None]
  - BONE MARROW FAILURE [None]
  - CHILLS [None]
  - CHOLELITHIASIS [None]
  - DEHYDRATION [None]
  - ENTEROCOLITIS VIRAL [None]
  - HEPATIC FUNCTION ABNORMAL [None]
  - HEPATIC STEATOSIS [None]
  - HEPATOMEGALY [None]
